FAERS Safety Report 20602551 (Version 2)
Quarter: 2022Q1

REPORT INFORMATION
  Report Type: Spontaneous
  Country: GB (occurrence: GB)
  Receive Date: 20220316
  Receipt Date: 20220323
  Transmission Date: 20220423
  Serious: Yes (Other)
  Sender: FDA-Public Use
  Company Number: GB-MLMSERVICE-20220302-3371252-1

PATIENT
  Age: 41 Year
  Sex: Female

DRUGS (3)
  1. TRASTUZUMAB [Suspect]
     Active Substance: TRASTUZUMAB
     Indication: Breast cancer metastatic
     Dosage: UNK UNK, CYCLIC FIRST-LINE METASTATIC TREATMENT
     Dates: start: 202003
  2. DOCETAXEL [Suspect]
     Active Substance: DOCETAXEL
     Indication: Breast cancer metastatic
     Dosage: UNK UNK, CYCLIC FIRST-LINE METASTATIC TREATMENT
     Dates: start: 202003
  3. PERTUZUMAB [Suspect]
     Active Substance: PERTUZUMAB
     Indication: Breast cancer metastatic
     Dosage: UNK UNK, CYCLIC FIRST-LINE METASTATIC TREATMENT
     Dates: start: 202003

REACTIONS (6)
  - Corneal infiltrates [Recovered/Resolved]
  - Corneal disorder [Recovered/Resolved]
  - Punctate keratitis [Recovered/Resolved]
  - Conjunctival hyperaemia [Recovered/Resolved]
  - Dry eye [Recovered/Resolved]
  - Exercise tolerance decreased [Unknown]

NARRATIVE: CASE EVENT DATE: 20200101
